FAERS Safety Report 22534442 (Version 2)
Quarter: 2023Q2

REPORT INFORMATION
  Report Type: Report from Study
  Country: GB (occurrence: GB)
  Receive Date: 20230608
  Receipt Date: 20230623
  Transmission Date: 20230722
  Serious: Yes (Hospitalization)
  Sender: FDA-Public Use
  Company Number: GB-BAXTER-2023BAX021826

PATIENT
  Age: 39 Year
  Sex: Female
  Weight: 69 kg

DRUGS (14)
  1. WATER FOR INJECTION [Suspect]
     Active Substance: WATER
     Indication: Parenteral nutrition
     Dosage: 50 ML (MILLILTRE) ONCE DAILY, INFUSION DURATION: 12 HOURS
     Route: 040
     Dates: start: 20230512, end: 20230513
  2. CERNEVIT [Suspect]
     Active Substance: VITAMINS
     Indication: Parenteral nutrition
     Dosage: 50 ML (MILLILITRE) ONCE DAILY, INFUSION DURATION: 12 HOURS
     Route: 040
     Dates: start: 20230512, end: 20230513
  3. DEXTROSE [Suspect]
     Active Substance: DEXTROSE\DEXTROSE MONOHYDRATE
     Indication: Parenteral nutrition
     Dosage: 7000 ML (MILLILITRE) ONCE DAILY, INFUSION DURATION: 12 HOURS
     Route: 040
     Dates: start: 20230512, end: 20230513
  4. SYNTHAMIN [Suspect]
     Active Substance: AMINO ACIDS
     Indication: Parenteral nutrition
     Dosage: 5455 ML (MILLILITRE) ONCE DAILY, INFUSION DURATION: 12 HOURS
     Route: 040
     Dates: start: 20230512, end: 20230513
  5. IRON\MINERALS\POTASSIUM IOD\SODIUM FLUORIDE\SODIUM MOLYBDATE\SODIUM SE [Suspect]
     Active Substance: IRON\MINERALS\POTASSIUM IOD\SODIUM FLUORIDE\SODIUM MOLYBDATE\SODIUM SELENITE\ZINC
     Indication: Parenteral nutrition
     Dosage: 100 ML (MILLILITRE) ONCE DAILY, INFUSION DURATION: 12 HOURS, DOSAGE FORM: CONCENTRATE FOR SOLUTION F
     Route: 040
     Dates: start: 20230512, end: 20230513
  6. IRON\MINERALS\POTASSIUM IOD\SODIUM FLUORIDE\SODIUM MOLYBDATE\SODIUM SE [Suspect]
     Active Substance: IRON\MINERALS\POTASSIUM IOD\SODIUM FLUORIDE\SODIUM MOLYBDATE\SODIUM SELENITE\ZINC
     Dosage: UNK
     Route: 040
     Dates: start: 20230514, end: 20230515
  7. CALCIUM CHLORIDE [Suspect]
     Active Substance: CALCIUM CHLORIDE
     Indication: Parenteral nutrition
     Dosage: 30 ML (MILLILITRE) ONCE DAILY, INFUSION DURATION: 12 HOURS
     Route: 040
     Dates: start: 20230512, end: 20230513
  8. MAGNESIUM SULFATE [Suspect]
     Active Substance: MAGNESIUM SULFATE
     Indication: Parenteral nutrition
     Dosage: 60 ML (MILLILITRE) ONCE DAILY, INFUSION DURATION: 12 HOURS
     Route: 040
     Dates: start: 20230512, end: 20230513
  9. POTASSIUM CHLORIDE [Suspect]
     Active Substance: POTASSIUM CHLORIDE
     Indication: Parenteral nutrition
     Dosage: 66.6 ML (MILLILITRRE) ONCE DAILY, INFUSION DURATION: 12 HOURS
     Route: 040
     Dates: start: 20230512, end: 20230513
  10. SODIUM CHLORIDE [Suspect]
     Active Substance: SODIUM CHLORIDE
     Indication: Parenteral nutrition
     Dosage: 650 ML (MILLILTRE) ONCE DAILY, INFUSION DURATION: 12 HOURS
     Route: 040
     Dates: start: 20230512, end: 20230513
  11. SODIUM GLYCEROPHOSPHATE [Suspect]
     Active Substance: SODIUM GLYCEROPHOSPHATE
     Indication: Parenteral nutrition
     Dosage: 200 ML (MILLILITRE) ONCE DAILY, INFUSION DURATION: 12 HOURS
     Route: 040
     Dates: start: 20230512, end: 20230513
  12. WATER FOR INJECTION [Suspect]
     Active Substance: WATER
     Indication: Parenteral nutrition
     Dosage: 16289 ML (MILLILITRE) ONCE DAILY, INFUSION DURATION: 12 HOURS
     Route: 040
     Dates: start: 20230512, end: 20230513
  13. FERROUS CHLORIDE [Suspect]
     Active Substance: FERROUS CHLORIDE
     Indication: Parenteral nutrition
     Dosage: 99 ML (MILLILITRE) ONCE DAILY, INFUSION DURATION: 12 HOURS
     Route: 040
     Dates: start: 20230512, end: 20230513
  14. UNSPECIFIED INGREDIENT [Suspect]
     Active Substance: UNSPECIFIED INGREDIENT
     Dosage: UNK
     Route: 065

REACTIONS (6)
  - Influenza like illness [Recovered/Resolved]
  - Chills [Recovered/Resolved]
  - Feeling cold [Recovered/Resolved]
  - Influenza like illness [Unknown]
  - Chills [Unknown]
  - Feeling cold [Unknown]

NARRATIVE: CASE EVENT DATE: 20230513
